FAERS Safety Report 5607653-0 (Version None)
Quarter: 2008Q1

REPORT INFORMATION
  Report Type: 
  Country: None (occurrence: None)
  Receive Date: 20080128
  Receipt Date: 20080128
  Transmission Date: 20080703
  Serious: Yes (Hospitalization)
  Sender: FDA-Public Use
  Company Number: None

PATIENT
  Sex: Female
  Weight: 65.8 kg

DRUGS (2)
  1. COUMADIN [Suspect]
     Indication: ATRIAL FIBRILLATION
     Dosage: 3MG QMWF PO } 1YEAR
     Route: 048
  2. COUMADIN [Suspect]
     Dosage: 3MG QSUNDAY PO
     Route: 048

REACTIONS (2)
  - EPISTAXIS [None]
  - HAEMORRHAGE [None]
